FAERS Safety Report 15053967 (Version 1)
Quarter: 2018Q2

REPORT INFORMATION
  Report Type: Spontaneous
  Country: US (occurrence: US)
  Receive Date: 20180622
  Receipt Date: 20180622
  Transmission Date: 20180711
  Serious: No
  Sender: FDA-Public Use
  Company Number: US-AMNEAL PHARMACEUTICALS-2018AMN00307

PATIENT
  Sex: Female
  Weight: 70.3 kg

DRUGS (6)
  1. ESTRADIOL. [Suspect]
     Active Substance: ESTRADIOL
     Indication: VULVOVAGINAL DRYNESS
     Dosage: 1 TABLETS, 1X/DAY
     Route: 067
     Dates: start: 201702, end: 201805
  2. MECLIZINE HCI [Concomitant]
     Indication: SEASONAL ALLERGY
  3. LORATADINE. [Concomitant]
     Active Substance: LORATADINE
     Indication: SEASONAL ALLERGY
     Dosage: 10 MG, AS NEEDED
     Route: 065
  4. MECLIZINE HCI [Concomitant]
     Indication: MOTION SICKNESS
     Dosage: 12.5 MG, AS NEEDED
     Route: 065
  5. LEVOTHYROXINE. [Concomitant]
     Active Substance: LEVOTHYROXINE
     Indication: HYPOTHYROIDISM
     Dosage: UNK
     Route: 065
  6. ESTRADIOL. [Suspect]
     Active Substance: ESTRADIOL
     Dosage: 1 TABLETS, AS NEEDED (1X/WEEK OR 2X/WEEK)
     Route: 067
     Dates: start: 201702, end: 201805

REACTIONS (2)
  - Dyspareunia [Unknown]
  - Drug ineffective [Not Recovered/Not Resolved]
